FAERS Safety Report 7490114-4 (Version None)
Quarter: 2011Q2

REPORT INFORMATION
  Report Type: 
  Country: None (occurrence: None)
  Receive Date: 20110519
  Receipt Date: 20110517
  Transmission Date: 20111010
  Serious: Yes (Other)
  Sender: FDA-Public Use
  Company Number: US-PFIZER INC-2011106193

PATIENT
  Sex: Male
  Weight: 75 kg

DRUGS (6)
  1. CITALOPRAM [Concomitant]
     Indication: SPINAL OPERATION
     Dosage: 20 MG, 1X/DAY
     Route: 048
  2. GABAPENTIN [Concomitant]
     Indication: SPINAL OPERATION
     Dosage: 3200 MG, 1X/DAY
     Route: 048
  3. CHANTIX [Suspect]
     Indication: SMOKING CESSATION THERAPY
     Dosage: 0.5 MG, 1X/DAY
     Route: 048
     Dates: start: 20110101, end: 20110101
  4. GABAPENTIN [Concomitant]
     Indication: NERVOUS SYSTEM DISORDER
  5. LISINOPRIL [Concomitant]
     Indication: SPINAL OPERATION
     Dosage: 20 MG, 1X/DAY
     Route: 048
  6. HYDROCODONE [Concomitant]
     Indication: SPINAL OPERATION
     Dosage: 10/325 MG, 4X/DAY
     Route: 048

REACTIONS (3)
  - DEPRESSION [None]
  - SUICIDAL IDEATION [None]
  - ANXIETY [None]
